FAERS Safety Report 9069795 (Version 1)
Quarter: 2013Q1

REPORT INFORMATION
  Report Type: Report from Study
  Country: US (occurrence: US)
  Receive Date: 20130131
  Receipt Date: 20130131
  Transmission Date: 20140127
  Serious: No
  Sender: FDA-Public Use
  Company Number: US-ABBOTT-12P-163-1000375-00

PATIENT
  Age: 48 Year
  Sex: Female

DRUGS (6)
  1. HUMIRA [Suspect]
     Indication: RHEUMATOID ARTHRITIS
  2. PIROXICAM [Concomitant]
     Indication: RHEUMATOID ARTHRITIS
  3. CARBAMAZEPINE [Concomitant]
     Indication: HYPOTENSION
  4. HEART MEDICATION [Concomitant]
     Indication: PALPITATIONS
  5. UNKNOWN MEDICATION [Concomitant]
     Indication: DYSPEPSIA
  6. TYLENOL [Concomitant]

REACTIONS (3)
  - Feeling cold [Recovering/Resolving]
  - Nervousness [Recovering/Resolving]
  - Chills [Recovering/Resolving]
